FAERS Safety Report 23182553 (Version 1)
Quarter: 2023Q4

REPORT INFORMATION
  Report Type: Spontaneous
  Country: GB (occurrence: GB)
  Receive Date: 20231114
  Receipt Date: 20231114
  Transmission Date: 20240110
  Serious: Yes (Other)
  Sender: FDA-Public Use
  Company Number: GB-PURDUE-USA-2023-0305912

PATIENT
  Age: 57 Year
  Sex: Female
  Weight: 84 kg

DRUGS (18)
  1. BUPRENORPHINE [Suspect]
     Active Substance: BUPRENORPHINE
     Indication: Product used for unknown indication
     Dosage: APPLY 5MICROGRAMS/HOUR
     Route: 065
     Dates: start: 20231005
  2. AMITRIPTYLINE HYDROCHLORIDE [Concomitant]
     Active Substance: AMITRIPTYLINE HYDROCHLORIDE
     Indication: Product used for unknown indication
     Dosage: 1 DOSAGE FORM, DAILY
     Route: 065
     Dates: start: 20230211
  3. ATORVASTATIN [Concomitant]
     Active Substance: ATORVASTATIN
     Indication: Product used for unknown indication
     Dosage: TAKE ONE TABLET ONCE A WEEK FIRST WEEK; THEN ON...
     Route: 065
     Dates: start: 20230211
  4. CAPSAICIN [Concomitant]
     Active Substance: CAPSAICIN
     Indication: Product used for unknown indication
     Dosage: APPLY 3-4 TIMES/DAY
     Route: 065
     Dates: start: 20230807, end: 20230906
  5. CARBOMER [Concomitant]
     Active Substance: CARBOMER
     Indication: Product used for unknown indication
     Dosage: ONE DROP 3-4 TIMES DAILY
     Route: 065
     Dates: start: 20230211
  6. DAPAGLIFLOZIN [Concomitant]
     Active Substance: DAPAGLIFLOZIN
     Indication: Product used for unknown indication
     Dosage: 1 DOSAGE FORM, DAILY
     Route: 065
     Dates: start: 20230211
  7. FOLIC ACID [Concomitant]
     Active Substance: FOLIC ACID
     Indication: Product used for unknown indication
     Dosage: TAKE ONE DAILY SIX DAYS PER WEEK
     Route: 065
     Dates: start: 20230211
  8. GLICLAZIDE [Concomitant]
     Active Substance: GLICLAZIDE
     Indication: Product used for unknown indication
     Dosage: 1 DOSAGE FORM, BID
     Route: 065
     Dates: start: 20230530
  9. LANSOPRAZOLE [Concomitant]
     Active Substance: LANSOPRAZOLE
     Indication: Product used for unknown indication
     Dosage: 1 DOSAGE FORM, DAILY
     Route: 065
     Dates: start: 20230211
  10. LOSARTAN [Concomitant]
     Active Substance: LOSARTAN
     Indication: Product used for unknown indication
     Dosage: (WITH 50MG TABLET TO...
     Route: 065
     Dates: start: 20230211
  11. MEPTAZINOL HYDROCHLORIDE [Concomitant]
     Active Substance: MEPTAZINOL HYDROCHLORIDE
     Indication: Product used for unknown indication
     Dosage: TAKE ONE UP TO FOUR TIMES DAILY AS DIRECTED
     Route: 065
     Dates: start: 20230901, end: 20230929
  12. METHOTREXATE [Concomitant]
     Active Substance: METHOTREXATE
     Indication: Product used for unknown indication
     Dosage: 20MG (EIGHT TABLETS) TO BE TAKEN WEEKLY
     Route: 065
     Dates: start: 20230211
  13. MOMETASONE [Concomitant]
     Active Substance: MOMETASONE
     Indication: Product used for unknown indication
     Dosage: SPRAYS
     Route: 065
     Dates: start: 20230901, end: 20230913
  14. ACETAMINOPHEN [Concomitant]
     Active Substance: ACETAMINOPHEN
     Indication: Product used for unknown indication
     Dosage: TAKE ONE OR TWO UP TO FOUR TIMES DAILY
     Route: 065
     Dates: start: 20230211
  15. PIOGLITAZONE [Concomitant]
     Active Substance: PIOGLITAZONE
     Indication: Product used for unknown indication
     Dosage: 30 MILLIGRAM, DAILY
     Route: 065
     Dates: start: 20230811
  16. SENNOSIDES A AND B [Concomitant]
     Active Substance: SENNOSIDES A AND B
     Indication: Product used for unknown indication
     Dosage: TAKE ONE OR TWO AT NIGHT
     Route: 065
     Dates: start: 20230211, end: 20230809
  17. SITAGLIPTIN [Concomitant]
     Active Substance: SITAGLIPTIN
     Indication: Product used for unknown indication
     Dosage: 1 DOSAGE FORM, DAILY
     Route: 065
     Dates: start: 20230211
  18. VOLTAROL [DICLOFENAC POTASSIUM] [Concomitant]
     Indication: Product used for unknown indication
     Dosage: APPLY 3 TIMES/DAY
     Route: 065
     Dates: start: 20230810, end: 20230824

REACTIONS (3)
  - Dermatitis allergic [Recovered/Resolved]
  - Blister [Unknown]
  - Inflammation [Unknown]

NARRATIVE: CASE EVENT DATE: 20231102
